FAERS Safety Report 8903411 (Version 2)
Quarter: 2013Q1

REPORT INFORMATION
  Report Type: Spontaneous
  Country: JP (occurrence: JP)
  Receive Date: 20121113
  Receipt Date: 20130123
  Transmission Date: 20140127
  Serious: Yes (Life-Threatening, Hospitalization)
  Sender: FDA-Public Use
  Company Number: JP-JNJFOC-20121104846

PATIENT
  Age: 84 Year
  Sex: Female
  Weight: 52 kg

DRUGS (11)
  1. XARELTO [Suspect]
     Indication: ATRIAL FIBRILLATION
     Route: 048
     Dates: start: 20121026, end: 20121029
  2. XARELTO [Suspect]
     Indication: CEREBROVASCULAR ACCIDENT PROPHYLAXIS
     Route: 048
     Dates: start: 20121026, end: 20121029
  3. BONOTEO [Concomitant]
     Route: 048
     Dates: start: 20120207
  4. TAKEPRON [Concomitant]
     Route: 048
     Dates: start: 20090508
  5. SUNRYTHM [Concomitant]
     Route: 048
     Dates: start: 20080407
  6. CONIEL [Concomitant]
     Route: 048
     Dates: start: 20101119
  7. MERISLON [Concomitant]
     Route: 048
     Dates: start: 20100912
  8. MERISLON [Concomitant]
     Route: 048
     Dates: start: 20080427
  9. PLAVIX [Concomitant]
     Route: 048
     Dates: start: 20090508
  10. VESICARE [Concomitant]
     Route: 048
  11. ITOROL [Concomitant]
     Route: 048
     Dates: start: 20090904

REACTIONS (1)
  - Interstitial lung disease [Recovering/Resolving]
